FAERS Safety Report 6140823-4 (Version None)
Quarter: 2009Q2

REPORT INFORMATION
  Report Type: 
  Country: None (occurrence: None)
  Receive Date: 20090402
  Receipt Date: 20081118
  Transmission Date: 20091009
  Serious: No
  Sender: FDA-Public Use
  Company Number: US-KINGPHARMUSA00001-K200801326

PATIENT
  Age: 47 Year
  Sex: Female
  Weight: 149.66 kg

DRUGS (6)
  1. SKELAXIN [Suspect]
     Indication: MUSCLE SPASMS
     Dosage: 800 MG, TID
     Route: 048
     Dates: start: 20080901
  2. METFORMIN HCL [Concomitant]
     Indication: DIABETES MELLITUS
  3. ALBUTEROL [Concomitant]
     Indication: ASTHMA
  4. GASTROCROM [Concomitant]
     Indication: HYPERSENSITIVITY
  5. INTAL [Concomitant]
     Indication: ASTHMA
  6. CLARITIN                           /00917501/ [Concomitant]
     Indication: SEASONAL ALLERGY

REACTIONS (2)
  - MUSCLE SPASMS [None]
  - REACTION TO PRESERVATIVES [None]
